FAERS Safety Report 7359117-4 (Version None)
Quarter: 2011Q1

REPORT INFORMATION
  Report Type: 
  Country: None (occurrence: None)
  Receive Date: 20110317
  Receipt Date: 20110309
  Transmission Date: 20110831
  Serious: Yes (Other)
  Sender: FDA-Public Use
  Company Number: GB-MPIJNJ-2011-00521

PATIENT

DRUGS (4)
  1. ZOMETA [Concomitant]
     Dosage: 4 MG, UNK
  2. VELCADE [Suspect]
     Indication: MULTIPLE MYELOMA
     Dosage: 2.2 MG, UNK
     Route: 042
     Dates: start: 20100930
  3. DIHYDROCODEINE BITARTRATE INJ [Concomitant]
     Dosage: 30 MG, UNK
     Dates: start: 20101001
  4. DEXAMETHASONE [Concomitant]
     Dosage: 40 MG, UNK

REACTIONS (2)
  - DRUG INEFFECTIVE [None]
  - ANAEMIA [None]
